FAERS Safety Report 10565378 (Version 2)
Quarter: 2014Q4

REPORT INFORMATION
  Report Type: Spontaneous
  Country: US (occurrence: US)
  Receive Date: 20141105
  Receipt Date: 20141120
  Transmission Date: 20150529
  Serious: Yes (Death, Hospitalization)
  Sender: FDA-Public Use
  Company Number: US-AUROBINDO-AUR-APL-2014-11576

PATIENT
  Age: 75 Year
  Sex: Male

DRUGS (2)
  1. ASPIRIN. [Concomitant]
     Active Substance: ASPIRIN
     Indication: PRODUCT USED FOR UNKNOWN INDICATION
     Dosage: UNK
     Route: 065
     Dates: start: 201208
  2. CLOPIDOGREL [Suspect]
     Active Substance: CLOPIDOGREL BISULFATE
     Indication: ANTIPLATELET THERAPY
     Dosage: 75 MG, DAILY
     Route: 065
     Dates: start: 201208

REACTIONS (6)
  - Myocardial infarction [Unknown]
  - Angina pectoris [Recovered/Resolved]
  - Multi-organ failure [Fatal]
  - Chest pain [Recovered/Resolved]
  - Thrombosis in device [Unknown]
  - General physical health deterioration [Recovered/Resolved]
